FAERS Safety Report 8556448-7 (Version None)
Quarter: 2012Q3

REPORT INFORMATION
  Report Type: 
  Country: None (occurrence: None)
  Receive Date: 20120801
  Receipt Date: 20120727
  Transmission Date: 20120928
  Serious: Yes (Other)
  Sender: FDA-Public Use
  Company Number: PHFR2011GB03696

PATIENT
  Sex: Male

DRUGS (4)
  1. CLOZARIL [Suspect]
     Indication: SCHIZOPHRENIA
     Dosage: 500 MG
     Route: 048
     Dates: start: 19980304
  2. CLOZARIL [Suspect]
     Dates: start: 20120523
  3. LITHIUM CARBONATE [Concomitant]
     Dosage: 400 MG, UNK
     Route: 065
  4. LITHIUM CARBONATE [Concomitant]
     Dosage: 200 MG, UNK
     Route: 065

REACTIONS (3)
  - BLOOD UREA INCREASED [None]
  - RENAL FAILURE CHRONIC [None]
  - BLOOD CREATININE INCREASED [None]
